FAERS Safety Report 22029426 (Version 2)
Quarter: 2023Q2

REPORT INFORMATION
  Report Type: Report from Study
  Country: US (occurrence: None)
  Receive Date: 20230223
  Receipt Date: 20230405
  Transmission Date: 20230721
  Serious: Yes (Hospitalization)
  Sender: FDA-Public Use
  Company Number: 2023A039653

PATIENT
  Age: 28182 Day
  Sex: Male
  Weight: 73.9 kg

DRUGS (1)
  1. CALQUENCE [Suspect]
     Active Substance: ACALABRUTINIB
     Indication: B-cell small lymphocytic lymphoma
     Route: 048
     Dates: start: 20221216, end: 20230125

REACTIONS (3)
  - Gastrointestinal haemorrhage [Recovered/Resolved]
  - Respiratory failure [Recovered/Resolved]
  - Anaemia [Recovered/Resolved]

NARRATIVE: CASE EVENT DATE: 20230125
